FAERS Safety Report 9900443 (Version 1)
Quarter: 2014Q1

REPORT INFORMATION
  Report Type: Spontaneous
  Country: US (occurrence: US)
  Receive Date: 20140217
  Receipt Date: 20140217
  Transmission Date: 20141002
  Serious: Yes (Hospitalization)
  Sender: FDA-Public Use
  Company Number: US-BEH-2014040080

PATIENT
  Sex: Male

DRUGS (3)
  1. KCENTRA [Suspect]
     Indication: HAEMORRHAGE INTRACRANIAL
     Route: 042
     Dates: start: 20140109
  2. KEPPRA [Suspect]
  3. VIMPAT [Suspect]

REACTIONS (2)
  - Rash [Recovering/Resolving]
  - Petechiae [Unknown]
